FAERS Safety Report 7435692-6 (Version None)
Quarter: 2011Q2

REPORT INFORMATION
  Report Type: 
  Country: None (occurrence: None)
  Receive Date: 20110425
  Receipt Date: 20110412
  Transmission Date: 20111010
  Serious: Yes (Other)
  Sender: FDA-Public Use
  Company Number: PHHY2011GB30376

PATIENT
  Age: 35 Year
  Sex: Male

DRUGS (7)
  1. OPIOIDS [Concomitant]
     Indication: BACK PAIN
  2. THEOPHYLLINE [Concomitant]
  3. SALMETEROL [Suspect]
  4. FLUTICASONE PROPIONATE [Suspect]
  5. ALBUTEROL SULFATE AUTOHALER [Suspect]
  6. OMALIZUMAB [Concomitant]
     Dosage: UNK
     Dates: start: 20080101
  7. PREDNISOLONE [Suspect]
     Indication: ASTHMA
     Dosage: 30.60 MG, UNK
     Route: 048

REACTIONS (15)
  - URINARY INCONTINENCE [None]
  - CUSHINGOID [None]
  - MUSCULAR WEAKNESS [None]
  - ASTHENIA [None]
  - DRUG DEPENDENCE [None]
  - WEIGHT INCREASED [None]
  - HYPERTONIA [None]
  - EPIDURAL LIPOMATOSIS [None]
  - ERECTILE DYSFUNCTION [None]
  - SPINAL CORD COMPRESSION [None]
  - HYPOAESTHESIA [None]
  - HYPERREFLEXIA [None]
  - CLONUS [None]
  - SENSORY DISTURBANCE [None]
  - CONDITION AGGRAVATED [None]
